FAERS Safety Report 8912196 (Version 1)
Quarter: 2012Q4

REPORT INFORMATION
  Report Type: 
  Country: MY (occurrence: MY)
  Receive Date: 20121116
  Receipt Date: 20121116
  Transmission Date: 20130627
  Serious: Yes (Hospitalization)
  Sender: FDA-Public Use
  Company Number: MY-ELI_LILLY_AND_COMPANY-MY201211001760

PATIENT
  Age: 35 Year
  Sex: Female

DRUGS (3)
  1. CYMBALTA [Suspect]
     Dosage: 60 mg, UNK
  2. SERTRALINE [Concomitant]
  3. WELLBUTRIN [Concomitant]

REACTIONS (1)
  - Pustular psoriasis [Unknown]
